FAERS Safety Report 10255735 (Version 1)
Quarter: 2014Q2

REPORT INFORMATION
  Report Type: Spontaneous
  Country: CA (occurrence: CA)
  Receive Date: 20140624
  Receipt Date: 20140624
  Transmission Date: 20141212
  Serious: Yes (Other)
  Sender: FDA-Public Use
  Company Number: CA-TEVA-489987USA

PATIENT
  Age: 53 Year
  Sex: Female
  Weight: 61 kg

DRUGS (4)
  1. IRINOTECAN [Suspect]
     Indication: PRODUCT USED FOR UNKNOWN INDICATION
     Dosage: 21.0714 MILLIGRAM DAILY;
     Route: 042
  2. LEUCOVORIN CALCIUM [Suspect]
     Dosage: 46.8571 MILLIGRAM DAILY;
     Route: 042
  3. DEXAMETHASONE [Concomitant]
  4. ONDANSETRON [Concomitant]

REACTIONS (4)
  - Disturbance in attention [Recovered/Resolved]
  - Hot flush [Recovered/Resolved]
  - Hypoaesthesia oral [Recovered/Resolved]
  - Speech disorder [Recovered/Resolved]
